FAERS Safety Report 20517346 (Version 2)
Quarter: 2022Q1

REPORT INFORMATION
  Report Type: Spontaneous
  Country: US (occurrence: US)
  Receive Date: 20220225
  Receipt Date: 20220309
  Transmission Date: 20220424
  Serious: Yes (Hospitalization, Other)
  Sender: FDA-Public Use
  Company Number: US-Accord-255103

PATIENT
  Age: 36 Year
  Sex: Male

DRUGS (3)
  1. QUETIAPINE [Interacting]
     Active Substance: QUETIAPINE
     Indication: Product used for unknown indication
     Dosage: 300 MG NIGHTLY
  2. VENLAFAXINE [Interacting]
     Active Substance: VENLAFAXINE HYDROCHLORIDE
     Indication: Product used for unknown indication
     Dosage: 150 MG DAILY
  3. HERBALS\MITRAGYNINE [Interacting]
     Active Substance: HERBALS\MITRAGYNINE
     Indication: Product used for unknown indication
     Dosage: TOTAL DAILY KRATOM CONSUMPTION TO APPROXIMATELY 90 G (APPROX. 0.75 G CAPSULES * 120 CAPSULES)

REACTIONS (5)
  - Serotonin syndrome [Recovered/Resolved]
  - Drug interaction [Unknown]
  - Sinus tachycardia [Recovered/Resolved]
  - Drug level increased [Recovered/Resolved]
  - Electrocardiogram QT prolonged [Recovered/Resolved]
